FAERS Safety Report 10409184 (Version 1)
Quarter: 2014Q3

REPORT INFORMATION
  Report Type: Spontaneous
  Country: US (occurrence: None)
  Receive Date: 20140825
  Receipt Date: 20140825
  Transmission Date: 20150326
  Serious: No
  Sender: FDA-Public Use
  Company Number: None

PATIENT
  Age: 72 Year
  Sex: Male
  Weight: 83.92 kg

DRUGS (3)
  1. METOPROLOL TARTRATE. [Suspect]
     Active Substance: METOPROLOL TARTRATE
     Indication: CORONARY ARTERIAL STENT INSERTION
     Dosage: ONE TABLET TWICE A DAY, TWICE DAILY, TAKEN BY MOUTH
     Route: 048
  2. METOPROLOL TARTRATE. [Suspect]
     Active Substance: METOPROLOL TARTRATE
     Indication: HYPERTENSION
     Dosage: ONE TABLET TWICE A DAY, TWICE DAILY, TAKEN BY MOUTH
     Route: 048
  3. METOPROLOL TARTRATE. [Suspect]
     Active Substance: METOPROLOL TARTRATE
     Indication: CARDIAC DISORDER
     Dosage: ONE TABLET TWICE A DAY, TWICE DAILY, TAKEN BY MOUTH
     Route: 048

REACTIONS (9)
  - Vision blurred [None]
  - Abdominal distension [None]
  - Cough [None]
  - Fatigue [None]
  - Asthenia [None]
  - Back pain [None]
  - Dyspnoea [None]
  - Dry eye [None]
  - Weight increased [None]
